FAERS Safety Report 21018756 (Version 1)
Quarter: 2022Q2

REPORT INFORMATION
  Report Type: Spontaneous
  Country: None (occurrence: US)
  Receive Date: 20220628
  Receipt Date: 20220628
  Transmission Date: 20220720
  Serious: No
  Sender: FDA-Public Use
  Company Number: US-QOL Medical, LLC-2130362

PATIENT
  Age: 20 Year
  Sex: Female
  Weight: 60.455 kg

DRUGS (2)
  1. SUCRAID [Suspect]
     Active Substance: SACROSIDASE
     Indication: Sucrase-isomaltase deficiency
     Route: 048
     Dates: start: 20220109, end: 20220119
  2. LEXAPRO [Concomitant]
     Active Substance: ESCITALOPRAM OXALATE

REACTIONS (2)
  - Nausea [Recovered/Resolved]
  - Vomiting [Recovered/Resolved]

NARRATIVE: CASE EVENT DATE: 20220110
